FAERS Safety Report 8419380-5 (Version None)
Quarter: 2012Q2

REPORT INFORMATION
  Report Type: 
  Country: None (occurrence: None)
  Receive Date: 20120607
  Receipt Date: 20120530
  Transmission Date: 20120825
  Serious: Yes (Other)
  Sender: FDA-Public Use
  Company Number: US-ASTRAZENECA-2012SE28434

PATIENT
  Sex: Male

DRUGS (2)
  1. LOPID [Suspect]
     Indication: DYSLIPIDAEMIA
     Route: 065
  2. CRESTOR [Suspect]
     Route: 048

REACTIONS (2)
  - BLOOD CREATINE PHOSPHOKINASE INCREASED [None]
  - OFF LABEL USE [None]
